FAERS Safety Report 6323459-1 (Version None)
Quarter: 2009Q3

REPORT INFORMATION
  Report Type: 
  Country: None (occurrence: None)
  Receive Date: 20090824
  Receipt Date: 20090324
  Transmission Date: 20100115
  Serious: No
  Sender: FDA-Public Use
  Company Number: US-ABBOTT-09P-163-0564391-00

PATIENT
  Sex: Male
  Weight: 104.42 kg

DRUGS (10)
  1. NIASPAN [Suspect]
     Indication: BLOOD CHOLESTEROL
     Route: 048
  2. TRICOR [Suspect]
     Indication: DRUG USE FOR UNKNOWN INDICATION
  3. METFORMIN HCL [Concomitant]
     Indication: DIABETES MELLITUS
  4. ALTACE [Concomitant]
     Indication: DRUG USE FOR UNKNOWN INDICATION
  5. LOVASA [Concomitant]
     Indication: DRUG USE FOR UNKNOWN INDICATION
  6. ALLEGRA [Concomitant]
     Indication: DRUG USE FOR UNKNOWN INDICATION
  7. ASPIRIN [Concomitant]
     Indication: DRUG USE FOR UNKNOWN INDICATION
  8. SINGULAIR [Concomitant]
     Indication: DRUG USE FOR UNKNOWN INDICATION
  9. VERAPAMIL EXTENDED-RELEASE [Concomitant]
     Indication: DRUG USE FOR UNKNOWN INDICATION
  10. BETA [Concomitant]
     Indication: DIABETES MELLITUS
     Dosage: 10 UNITS, 2 PENS/DAY

REACTIONS (2)
  - BLOOD CHOLESTEROL ABNORMAL [None]
  - BLOOD GLUCOSE FLUCTUATION [None]
